FAERS Safety Report 9042747 (Version 2)
Quarter: 2013Q2

REPORT INFORMATION
  Report Type: Report from Study
  Country: GR (occurrence: GR)
  Receive Date: 20130129
  Receipt Date: 20130604
  Transmission Date: 20140414
  Serious: Yes (Hospitalization)
  Sender: FDA-Public Use
  Company Number: GR-ABBOTT-13P-066-1040543-00

PATIENT
  Sex: Male
  Weight: 71.5 kg

DRUGS (11)
  1. ZEMPLAR [Suspect]
     Indication: RENAL FAILURE CHRONIC
     Dosage: 2.5 X 3
     Route: 042
     Dates: start: 20120627
  2. ZEMPLAR [Suspect]
     Indication: HYPERPARATHYROIDISM SECONDARY
  3. RENVELA [Concomitant]
     Indication: HYPERPHOSPHATAEMIA
     Dosage: 2X3
     Route: 048
  4. FOSRENOL [Concomitant]
     Indication: HYPERPHOSPHATAEMIA
     Route: 048
  5. RANEXA [Concomitant]
     Indication: CORONARY ARTERY DISEASE
  6. VERBORIL [Concomitant]
     Indication: OSTEOARTHRITIS
  7. CYMBALTA [Concomitant]
     Indication: DEPRESSION
  8. PROCORALAN [Concomitant]
     Indication: TACHYCARDIA
  9. MIMPARA [Concomitant]
     Indication: HYPERPARATHYROIDISM SECONDARY
     Dates: start: 20120910
  10. ATROST [Concomitant]
     Indication: HYPERLIPIDAEMIA
  11. LYRICA [Concomitant]
     Indication: NEURALGIA

REACTIONS (1)
  - Femur fracture [Recovered/Resolved]
